FAERS Safety Report 5657100-8 (Version None)
Quarter: 2008Q1

REPORT INFORMATION
  Report Type: 
  Country: None (occurrence: None)
  Receive Date: 20080310
  Receipt Date: 20080303
  Transmission Date: 20080703
  Serious: Yes (Hospitalization)
  Sender: FDA-Public Use
  Company Number: GB-JNJFOC-20050701933

PATIENT
  Age: 7 Year
  Sex: Female
  Weight: 30 kg

DRUGS (7)
  1. CHILDREN'S IBUPROFEN [Suspect]
     Indication: ABDOMINAL PAIN
     Route: 048
  2. DICLOFENAC SODIUM [Suspect]
     Indication: ABDOMINAL PAIN
     Route: 054
  3. CEFTRIAXONE [Concomitant]
     Indication: URINARY TRACT INFECTION
     Route: 042
  4. NIFEDIPINE [Concomitant]
     Indication: HYPERTENSION
  5. ONDANSETRON [Concomitant]
     Indication: VOMITING
     Route: 042
  6. ACETAMINOPHEN [Concomitant]
     Indication: PYREXIA
     Route: 048
  7. ACETAMINOPHEN [Concomitant]
     Route: 054

REACTIONS (2)
  - RENAL FAILURE ACUTE [None]
  - RENAL TUBULAR NECROSIS [None]
